FAERS Safety Report 4513894-6 (Version None)
Quarter: 2004Q4

REPORT INFORMATION
  Report Type: 
  Country: None (occurrence: None)
  Receive Date: 20041130
  Receipt Date: 20040922
  Transmission Date: 20050328
  Serious: No
  Sender: FDA-Public Use
  Company Number: US-GLAXOSMITHKLINE-A0526862A

PATIENT
  Sex: Female

DRUGS (2)
  1. WELLBUTRIN XL [Suspect]
     Dosage: 300MG PER DAY
     Route: 048
     Dates: start: 20040912
  2. PREDNISONE [Concomitant]

REACTIONS (1)
  - DRUG INEFFECTIVE [None]
